FAERS Safety Report 9690273 (Version 1)
Quarter: 2013Q4

REPORT INFORMATION
  Report Type: Spontaneous
  Country: US (occurrence: None)
  Receive Date: 20131114
  Receipt Date: 20131114
  Transmission Date: 20140711
  Serious: Yes (Hospitalization)
  Sender: FDA-Public Use
  Company Number: None

PATIENT
  Age: 17 Year
  Sex: Male
  Weight: 58.9 kg

DRUGS (5)
  1. DEXAMETHASONE [Suspect]
  2. PEG-L-ASPARAGINASE (K-H) [Suspect]
  3. DOXORUBICIN HYDROCHLORIDE [Suspect]
  4. METHOTREXATE [Suspect]
  5. VINCRISTINE SULFATE [Suspect]

REACTIONS (6)
  - Weight decreased [None]
  - Dehydration [None]
  - Hyperglycaemia [None]
  - Pancreatitis [None]
  - Cholelithiasis [None]
  - Pollakiuria [None]
